FAERS Safety Report 21784150 (Version 1)
Quarter: 2022Q4

REPORT INFORMATION
  Report Type: Spontaneous
  Country: US (occurrence: None)
  Receive Date: 20221226
  Receipt Date: 20221226
  Transmission Date: 20230113
  Serious: Yes (Disabling)
  Sender: FDA-Public Use
  Company Number: None

PATIENT
  Age: 40 Year
  Sex: 0
  Weight: 81 kg

DRUGS (1)
  1. DULOXETINE HYDROCHLORIDE [Suspect]
     Active Substance: DULOXETINE HYDROCHLORIDE
     Dates: start: 20221221, end: 20221224

REACTIONS (6)
  - Dizziness [None]
  - Disorientation [None]
  - Vomiting [None]
  - Migraine [None]
  - Insomnia [None]
  - Disturbance in attention [None]

NARRATIVE: CASE EVENT DATE: 20221222
